FAERS Safety Report 25218780 (Version 3)
Quarter: 2025Q2

REPORT INFORMATION
  Report Type: Spontaneous
  Country: US (occurrence: US)
  Receive Date: 20250421
  Receipt Date: 20250515
  Transmission Date: 20250716
  Serious: No
  Sender: AMGEN
  Company Number: US-AMGEN-USASP2025073937

PATIENT
  Age: 75 Year
  Sex: Female

DRUGS (6)
  1. REPATHA [Suspect]
     Active Substance: EVOLOCUMAB
     Indication: Lipoprotein (a) increased
     Dosage: 140 MILLIGRAM, Q2WK
     Route: 058
     Dates: start: 202501
  2. REPATHA [Suspect]
     Active Substance: EVOLOCUMAB
     Indication: Hypercholesterolaemia
     Route: 058
  3. REPATHA [Suspect]
     Active Substance: EVOLOCUMAB
     Route: 058
  4. REPATHA [Suspect]
     Active Substance: EVOLOCUMAB
     Route: 058
  5. ROSUVASTATIN [Concomitant]
     Active Substance: ROSUVASTATIN
     Indication: Blood cholesterol
     Dosage: 2.5 MILLIGRAM, BID
     Route: 065
  6. ZETIA [Concomitant]
     Active Substance: EZETIMIBE
     Indication: Blood cholesterol abnormal
     Dosage: 10 MILLIGRAM, QD
     Route: 065
     Dates: start: 2020

REACTIONS (5)
  - Nasopharyngitis [Not Recovered/Not Resolved]
  - Feeling abnormal [Unknown]
  - Device difficult to use [Unknown]
  - Wrong technique in product usage process [Unknown]
  - Drug dose omission by device [Unknown]

NARRATIVE: CASE EVENT DATE: 20250101
